FAERS Safety Report 17661435 (Version 1)
Quarter: 2020Q2

REPORT INFORMATION
  Report Type: Spontaneous
  Country: AT (occurrence: AT)
  Receive Date: 20200413
  Receipt Date: 20200413
  Transmission Date: 20200713
  Serious: Yes (Other)
  Sender: FDA-Public Use
  Company Number: AT-PFIZER INC-2020149015

PATIENT

DRUGS (4)
  1. FORTECORTIN [DEXAMETHASONE] [Concomitant]
     Active Substance: DEXAMETHASONE
     Dosage: UNK (STRENGTH: 20 MG, AS SHORT INFUSION)
  2. CARBOPLATIN. [Suspect]
     Active Substance: CARBOPLATIN
     Dosage: 10 ML, UNK
     Dates: start: 20200217
  3. ONDANSETRON [Concomitant]
     Active Substance: ONDANSETRON
     Dosage: UNK
  4. EMEND [Concomitant]
     Active Substance: APREPITANT
     Dosage: UNK (125 OVER THE MONTH)

REACTIONS (5)
  - Seizure [Recovered/Resolved]
  - Anaphylactic shock [Recovered/Resolved]
  - Pulse absent [Recovered/Resolved]
  - Flushing [Recovered/Resolved]
  - Respiratory failure [Recovered/Resolved]

NARRATIVE: CASE EVENT DATE: 20200217
